FAERS Safety Report 18015000 (Version 1)
Quarter: 2020Q3

REPORT INFORMATION
  Report Type: Spontaneous
  Country: US (occurrence: US)
  Receive Date: 20200713
  Receipt Date: 20200713
  Transmission Date: 20201103
  Serious: Yes (Other)
  Sender: FDA-Public Use
  Company Number: US-PURDUE-USA-2020-0156671

PATIENT

DRUGS (1)
  1. OXYCODONE HYDROCHLORIDE (SIMILAR TO NDA 22?272) [Suspect]
     Active Substance: OXYCODONE HYDROCHLORIDE
     Indication: KNEE ARTHROPLASTY
     Dosage: UNK
     Route: 048

REACTIONS (6)
  - Spinal cord neoplasm [Unknown]
  - Single functional kidney [Not Recovered/Not Resolved]
  - Drug dependence [Not Recovered/Not Resolved]
  - Knee arthroplasty [Unknown]
  - Withdrawal syndrome [Unknown]
  - Renal cancer [Unknown]
